FAERS Safety Report 8969706 (Version 1)
Quarter: 2012Q4

REPORT INFORMATION
  Report Type: 
  Country: JP (occurrence: JP)
  Receive Date: 20121218
  Receipt Date: 20121218
  Transmission Date: 20130627
  Serious: Yes (Other)
  Sender: FDA-Public Use
  Company Number: JP-MERCK-2012SP018016

PATIENT
  Age: 65 Year
  Sex: Male

DRUGS (2)
  1. PEGINTRON [Suspect]
     Indication: HEPATITIS C
     Dosage: 100 Microgram, qw
     Route: 058
     Dates: start: 20110704, end: 201203
  2. REBETOL [Suspect]
     Indication: HEPATITIS C
     Dosage: 400 mg, bid
     Route: 048
     Dates: start: 20110704, end: 201203

REACTIONS (3)
  - Toxic epidermal necrolysis [Recovered/Resolved]
  - Purpura [Recovered/Resolved]
  - Herpes zoster [Recovered/Resolved]
